FAERS Safety Report 8663912 (Version 2)
Quarter: 2013Q1

REPORT INFORMATION
  Report Type: Spontaneous
  Country: BR (occurrence: BR)
  Receive Date: 20120713
  Receipt Date: 20130129
  Transmission Date: 20140127
  Serious: Yes (Other)
  Sender: FDA-Public Use
  Company Number: PHHY2012BR060088

PATIENT
  Age: 76 Year
  Sex: Female

DRUGS (5)
  1. DIOVAN [Suspect]
     Indication: HYPERTENSION
     Dosage: 1 DF (320 MG) DAILY
     Route: 048
     Dates: start: 201206
  2. DIOVAN [Suspect]
     Dosage: 0.5 DF (320 MG), UNK
     Route: 048
     Dates: start: 20120709
  3. DIOVAN [Suspect]
     Dosage: 1 DF (80 MG) DAILY
     Route: 048
     Dates: start: 201208
  4. INDERAL [Concomitant]
     Indication: BLOOD PRESSURE
     Dosage: 1 DF, DAILY
     Route: 048
  5. ONGLYZA [Concomitant]
     Indication: DIABETES MELLITUS
     Dosage: 1 DF, DAILY
     Route: 048

REACTIONS (4)
  - Cataract [Recovered/Resolved]
  - Drug intolerance [Not Recovered/Not Resolved]
  - Wrong technique in drug usage process [Not Recovered/Not Resolved]
  - Blood pressure decreased [Recovered/Resolved]
